FAERS Safety Report 9139575 (Version 2)
Quarter: 2013Q2

REPORT INFORMATION
  Report Type: Spontaneous
  Country: GB (occurrence: GB)
  Receive Date: 20130305
  Receipt Date: 20130401
  Transmission Date: 20140414
  Serious: Yes (Other)
  Sender: FDA-Public Use
  Company Number: PHFR2013GB001496

PATIENT
  Age: 73 Year
  Sex: Female

DRUGS (2)
  1. EXJADE [Suspect]
     Indication: MYELODYSPLASTIC SYNDROME
     Dosage: UNK UKN, UNK
  2. EXJADE [Suspect]
     Dosage: 500 MG, BID
     Dates: start: 2012

REACTIONS (6)
  - Herpes zoster [Unknown]
  - Rash [Unknown]
  - Serum ferritin increased [Unknown]
  - Constipation [Unknown]
  - Scar [Unknown]
  - Therapeutic response decreased [Unknown]
